FAERS Safety Report 17690157 (Version 3)
Quarter: 2020Q4

REPORT INFORMATION
  Report Type: Spontaneous
  Country: NO (occurrence: NO)
  Receive Date: 20200421
  Receipt Date: 20201126
  Transmission Date: 20210113
  Serious: Yes (Hospitalization, Disabling)
  Sender: FDA-Public Use
  Company Number: NO-JNJFOC-20200407349

PATIENT
  Age: 22 Year
  Sex: Male

DRUGS (8)
  1. ZOLOFT [Concomitant]
     Active Substance: SERTRALINE HYDROCHLORIDE
     Indication: DEPRESSION
  2. ZOLOFT [Concomitant]
     Active Substance: SERTRALINE HYDROCHLORIDE
     Indication: ANXIETY
     Route: 065
     Dates: start: 200210
  3. LAMICTAL [Concomitant]
     Active Substance: LAMOTRIGINE
     Indication: PRODUCT USED FOR UNKNOWN INDICATION
     Route: 065
  4. RITALIN [Suspect]
     Active Substance: METHYLPHENIDATE HYDROCHLORIDE
     Route: 065
     Dates: start: 2002, end: 20130301
  5. LAMITOL [Concomitant]
     Active Substance: LABETALOL HYDROCHLORIDE
     Indication: PRODUCT USED FOR UNKNOWN INDICATION
     Route: 065
  6. CONCERTA [Suspect]
     Active Substance: METHYLPHENIDATE HYDROCHLORIDE
     Indication: PRODUCT USED FOR UNKNOWN INDICATION
     Route: 065
     Dates: start: 20011001, end: 20130301
  7. RITALIN [Suspect]
     Active Substance: METHYLPHENIDATE HYDROCHLORIDE
     Indication: DISTURBANCE IN ATTENTION
     Route: 065
     Dates: start: 20011001, end: 20130301
  8. CONCERTA [Suspect]
     Active Substance: METHYLPHENIDATE HYDROCHLORIDE
     Route: 065
     Dates: start: 200309, end: 2012

REACTIONS (17)
  - Apathy [Unknown]
  - Depression [Unknown]
  - Attention deficit hyperactivity disorder [Unknown]
  - Obsessive-compulsive disorder [Not Recovered/Not Resolved]
  - Delusion [Not Recovered/Not Resolved]
  - Disease progression [Unknown]
  - Anxiety [Unknown]
  - Fear-related avoidance of activities [Unknown]
  - Psychotic disorder [Unknown]
  - Asthenia [Unknown]
  - Compulsions [Not Recovered/Not Resolved]
  - Tremor [Unknown]
  - Suicidal ideation [Unknown]
  - Circadian rhythm sleep disorder [Unknown]
  - Anxiety disorder [Unknown]
  - Disturbance in attention [Unknown]
  - Paranoid personality disorder [Unknown]

NARRATIVE: CASE EVENT DATE: 2007
